FAERS Safety Report 5976605-3 (Version None)
Quarter: 2008Q4

REPORT INFORMATION
  Report Type: 
  Country: None (occurrence: None)
  Receive Date: 20081202
  Receipt Date: 20070219
  Transmission Date: 20090506
  Serious: Yes (Hospitalization)
  Sender: FDA-Public Use
  Company Number: GB-JNJCH-2007307857

PATIENT
  Age: 30 Year
  Sex: Male

DRUGS (2)
  1. ACETAMINOPHEN [Suspect]
     Indication: SUICIDAL IDEATION
     Dosage: TEXT:APPROXIMATELY 30 TABLETS ONCE
     Route: 048
     Dates: start: 20001029, end: 20001029
  2. SEROXAT ^CIBA-GEIGY^ [Suspect]
     Dosage: TEXT:UNSPECIFIED
     Route: 065

REACTIONS (9)
  - AGGRESSION [None]
  - ALCOHOL POISONING [None]
  - DIZZINESS [None]
  - DRUG WITHDRAWAL SYNDROME [None]
  - NAUSEA [None]
  - OVERDOSE [None]
  - PARAESTHESIA [None]
  - SUICIDAL IDEATION [None]
  - SUICIDE ATTEMPT [None]
